FAERS Safety Report 5130190-7 (Version None)
Quarter: 2006Q4

REPORT INFORMATION
  Report Type: 
  Country: None (occurrence: None)
  Receive Date: 20061013
  Receipt Date: 20061001
  Transmission Date: 20070319
  Serious: Yes (Death)
  Sender: FDA-Public Use
  Company Number: 2006S1000216

PATIENT
  Age: 66 Year
  Sex: Male

DRUGS (1)
  1. CUBICIN [Suspect]
     Indication: BACTERAEMIA
     Dates: start: 20060101, end: 20060101

REACTIONS (4)
  - BACTERIAL INFECTION [None]
  - GENERAL PHYSICAL HEALTH DETERIORATION [None]
  - NOSOCOMIAL INFECTION [None]
  - STAPHYLOCOCCAL INFECTION [None]
